FAERS Safety Report 6955945-5 (Version None)
Quarter: 2010Q3

REPORT INFORMATION
  Report Type: 
  Country: None (occurrence: None)
  Receive Date: 20100830
  Receipt Date: 20100826
  Transmission Date: 20110219
  Serious: Yes (Disabling)
  Sender: FDA-Public Use
  Company Number: GR-MERCK-1005GRC00004

PATIENT
  Age: 76 Year
  Sex: Female

DRUGS (4)
  1. COSOPT [Suspect]
     Indication: GLAUCOMA
     Route: 047
     Dates: end: 20050101
  2. LATANOPROST [Suspect]
     Indication: GLAUCOMA
     Route: 047
     Dates: end: 20050101
  3. BETAXOLOL HCL [Suspect]
     Indication: GLAUCOMA
     Route: 047
     Dates: end: 20050101
  4. [THERAPY UNSPECIFIED] [Concomitant]
     Indication: GLAUCOMA
     Route: 047
     Dates: start: 20050101

REACTIONS (2)
  - OCULAR PEMPHIGOID [None]
  - REACTION TO DRUG EXCIPIENTS [None]
